FAERS Safety Report 18452898 (Version 1)
Quarter: 2020Q4

REPORT INFORMATION
  Report Type: Report from Study
  Country: US (occurrence: US)
  Receive Date: 20201102
  Receipt Date: 20201102
  Transmission Date: 20210114
  Serious: Yes (Hospitalization)
  Sender: FDA-Public Use
  Company Number: US-JNJFOC-20201040666

PATIENT
  Sex: Male

DRUGS (9)
  1. AZATHIOPRINE. [Concomitant]
     Active Substance: AZATHIOPRINE
  2. CEPHALEXIN                         /00145501/ [Concomitant]
     Active Substance: CEPHALEXIN
  3. STELARA [Suspect]
     Active Substance: USTEKINUMAB
     Indication: CROHN^S DISEASE
     Route: 058
     Dates: start: 20171027
  4. ALLOPURINOL. [Concomitant]
     Active Substance: ALLOPURINOL
  5. STELARA [Suspect]
     Active Substance: USTEKINUMAB
  6. BOTOX [Concomitant]
     Active Substance: ONABOTULINUMTOXINA
  7. SINGULAIR [Concomitant]
     Active Substance: MONTELUKAST SODIUM
  8. UCERIS [Concomitant]
     Active Substance: BUDESONIDE
  9. PREDNISONE. [Concomitant]
     Active Substance: PREDNISONE

REACTIONS (4)
  - Off label use [Unknown]
  - Kidney infection [Unknown]
  - Thrombosis [Unknown]
  - Product use issue [Unknown]
